FAERS Safety Report 12881592 (Version 1)
Quarter: 2016Q4

REPORT INFORMATION
  Report Type: Spontaneous
  Country: US (occurrence: US)
  Receive Date: 20161025
  Receipt Date: 20161025
  Transmission Date: 20170207
  Serious: No
  Sender: FDA-Public Use
  Company Number: US-JNJFOC-20160909739

PATIENT
  Sex: Female
  Weight: 68.04 kg

DRUGS (4)
  1. TOPAMAX [Suspect]
     Active Substance: TOPIRAMATE
     Indication: CYSTITIS INTERSTITIAL
     Route: 048
     Dates: start: 2011
  2. TOPAMAX [Suspect]
     Active Substance: TOPIRAMATE
     Indication: CYSTITIS INTERSTITIAL
     Route: 048
     Dates: start: 2007, end: 2011
  3. TOPAMAX [Suspect]
     Active Substance: TOPIRAMATE
     Indication: MIGRAINE
     Route: 048
     Dates: start: 2011
  4. TOPAMAX [Suspect]
     Active Substance: TOPIRAMATE
     Indication: MIGRAINE
     Route: 048
     Dates: start: 2007, end: 2011

REACTIONS (3)
  - Product use issue [Unknown]
  - Hyperhidrosis [Not Recovered/Not Resolved]
  - Off label use [Unknown]

NARRATIVE: CASE EVENT DATE: 2011
